FAERS Safety Report 12558438 (Version 1)
Quarter: 2016Q3

REPORT INFORMATION
  Report Type: Spontaneous
  Country: NL (occurrence: NL)
  Receive Date: 20160714
  Receipt Date: 20160714
  Transmission Date: 20161109
  Serious: Yes (Hospitalization, Other)
  Sender: FDA-Public Use
  Company Number: NL-TEVA-674638ISR

PATIENT
  Age: 93 Year
  Sex: Female

DRUGS (1)
  1. RISPERIDON 1 MG/ML PCH, DRANK [Suspect]
     Active Substance: RISPERIDONE
     Route: 048
     Dates: start: 2011

REACTIONS (7)
  - Depressed level of consciousness [Recovered/Resolved]
  - Pneumonia aspiration [Recovered/Resolved]
  - Toxicity to various agents [Recovered/Resolved]
  - Hypernatraemia [Recovered/Resolved]
  - Circumstance or information capable of leading to medication error [Unknown]
  - Hypokalaemia [Recovered/Resolved]
  - Accidental overdose [Unknown]

NARRATIVE: CASE EVENT DATE: 2011
